FAERS Safety Report 5059471-2 (Version None)
Quarter: 2006Q3

REPORT INFORMATION
  Report Type: 
  Country: None (occurrence: None)
  Receive Date: 20060724
  Receipt Date: 20060711
  Transmission Date: 20061208
  Serious: Yes (Hospitalization)
  Sender: FDA-Public Use
  Company Number: PHBS2006IT10412

PATIENT
  Age: 68 Year
  Sex: Male

DRUGS (3)
  1. MELPHALAN [Concomitant]
  2. PREDNISONE [Concomitant]
  3. ZOMETA [Suspect]
     Indication: MULTIPLE MYELOMA
     Dosage: 4 MG, QMO
     Dates: start: 20050228, end: 20060228

REACTIONS (2)
  - OSTEOMYELITIS [None]
  - SURGERY [None]
